FAERS Safety Report 9209369 (Version 2)
Quarter: 2013Q2

REPORT INFORMATION
  Report Type: Spontaneous
  Country: JP (occurrence: JP)
  Receive Date: 20130404
  Receipt Date: 20130408
  Transmission Date: 20140414
  Serious: Yes (Other)
  Sender: FDA-Public Use
  Company Number: JP-PFIZER INC-2013102440

PATIENT
  Sex: 0

DRUGS (2)
  1. NORVASC OD [Suspect]
     Route: 048
  2. GASMOTIN [Suspect]
     Route: 048

REACTIONS (2)
  - Gastrointestinal oedema [Unknown]
  - Diarrhoea [Not Recovered/Not Resolved]
